FAERS Safety Report 4803745-4 (Version None)
Quarter: 2005Q4

REPORT INFORMATION
  Report Type: 
  Country: None (occurrence: None)
  Receive Date: 20051014
  Receipt Date: 20050930
  Transmission Date: 20060501
  Serious: Yes (Hospitalization)
  Sender: FDA-Public Use
  Company Number: FR-2005-020390

PATIENT
  Age: 20 Year
  Sex: Male
  Weight: 75 kg

DRUGS (10)
  1. FLUDARA [Suspect]
     Dosage: SEE IMAGE
     Route: 042
     Dates: start: 20050602, end: 20050604
  2. FLUDARA [Suspect]
     Dosage: SEE IMAGE
     Route: 042
     Dates: start: 20050722, end: 20050725
  3. CYCLOPHOSPHAMIDE [Suspect]
     Dosage: SEE IMAGE
     Route: 042
     Dates: start: 20050605, end: 20050606
  4. CYCLOPHOSPHAMIDE [Suspect]
     Dosage: SEE IMAGE
     Route: 042
     Dates: start: 20050722, end: 20050723
  5. ZOVIRAX [Suspect]
     Dates: start: 20050530
  6. HEPARIN SODIUM [Suspect]
     Dosage: INTRAVENOUS
     Route: 042
     Dates: start: 20050530
  7. BUSULFEX [Suspect]
     Dosage: 60 MG,  1X/DAY, INTRAVENOUS
     Route: 042
     Dates: start: 20050531, end: 20050603
  8. CYCLOSPORINE [Suspect]
     Dosage: ORAL
     Route: 048
     Dates: start: 20050530, end: 20050721
  9. ZOPHREN (ONDANSETRON HYDROCHLORIDE) [Concomitant]
  10. PLITICAN (ALIZAPRIDE HYDROCHLORIDE) [Concomitant]

REACTIONS (8)
  - ACUTE PULMONARY OEDEMA [None]
  - CARDIAC DISORDER [None]
  - CARDIAC FAILURE [None]
  - CARDIOMEGALY [None]
  - CARDIOMYOPATHY [None]
  - CYTOMEGALOVIRUS INFECTION [None]
  - EJECTION FRACTION DECREASED [None]
  - IATROGENIC INJURY [None]
